FAERS Safety Report 17325049 (Version 1)
Quarter: 2020Q1

REPORT INFORMATION
  Report Type: Spontaneous
  Country: JP (occurrence: JP)
  Receive Date: 20200127
  Receipt Date: 20200127
  Transmission Date: 20200409
  Serious: Yes (Other)
  Sender: FDA-Public Use
  Company Number: JP-ASTRAZENECA-2020SE12870

PATIENT
  Sex: Male

DRUGS (5)
  1. SEROQUEL [Suspect]
     Active Substance: QUETIAPINE FUMARATE
     Indication: HYPERTENSION
     Route: 048
  2. DEPAS [Concomitant]
     Indication: HYPERTENSION
  3. CASODEX [Concomitant]
     Active Substance: BICALUTAMIDE
     Route: 048
  4. SEROQUEL [Suspect]
     Active Substance: QUETIAPINE FUMARATE
     Indication: HYPERTENSION
     Route: 048
  5. DEPAS [Concomitant]
     Indication: HYPERTENSION

REACTIONS (3)
  - Blood pressure increased [Recovering/Resolving]
  - Prostate cancer [Unknown]
  - Off label use [Unknown]
